FAERS Safety Report 8826396 (Version 2)
Quarter: 2012Q4

REPORT INFORMATION
  Report Type: 
  Country: GB (occurrence: GB)
  Receive Date: 20121005
  Receipt Date: 20121227
  Transmission Date: 20130627
  Serious: Yes (Hospitalization, Other)
  Sender: FDA-Public Use
  Company Number: PHFR2012GB005233

PATIENT
  Sex: Male

DRUGS (2)
  1. CLOZARIL [Suspect]
     Indication: SCHIZOPHRENIA
     Route: 048
     Dates: start: 20070927, end: 20120921
  2. CLOZARIL [Suspect]
     Dosage: 500 mg, daily

REACTIONS (2)
  - Appendicitis perforated [Unknown]
  - Pulmonary embolism [Recovered/Resolved]
